FAERS Safety Report 13858127 (Version 1)
Quarter: 2017Q3

REPORT INFORMATION
  Report Type: Spontaneous
  Country: US (occurrence: US)
  Receive Date: 20170811
  Receipt Date: 20170811
  Transmission Date: 20171127
  Serious: Yes (Other)
  Sender: FDA-Public Use
  Company Number: US-JAZZ-2017-US-010295

PATIENT
  Sex: Female

DRUGS (5)
  1. PRIALT [Suspect]
     Active Substance: ZICONOTIDE ACETATE
     Indication: PAIN
     Dosage: 0.125 ?G, QH
     Route: 037
     Dates: end: 201612
  2. MORPHINE [Suspect]
     Active Substance: MORPHINE
     Indication: PAIN
     Dosage: UNKNOWN DOSE AT LEAST HALF MORE THEN WHERE PT IS NOW
  3. MORPHINE [Suspect]
     Active Substance: MORPHINE
     Dosage: 0.15 MG, QH
     Route: 037
  4. BUPIVICAINE [Suspect]
     Active Substance: BUPIVACAINE
     Indication: PAIN
     Dosage: UNKNOWN DOSE AT LEAST HALF MORE THEN WHERE PT IS NOW
  5. BUPIVICAINE [Suspect]
     Active Substance: BUPIVACAINE
     Dosage: 0.225 MG, QH
     Route: 037

REACTIONS (2)
  - Neck surgery [Unknown]
  - Pain [Unknown]

NARRATIVE: CASE EVENT DATE: 2015
